FAERS Safety Report 4452322-6 (Version None)
Quarter: 2004Q3

REPORT INFORMATION
  Report Type: 
  Country: None (occurrence: None)
  Receive Date: 20040915
  Receipt Date: 20040901
  Transmission Date: 20050211
  Serious: Yes (Life-Threatening, Hospitalization)
  Sender: FDA-Public Use
  Company Number: 238841

PATIENT
  Age: 73 Year
  Sex: Female

DRUGS (7)
  1. NOVOMIX 30 (INSULIN ASPART) SUSPENSION FOR INJECTION, 100U/ML [Suspect]
     Indication: DIABETES MELLITUS INSULIN-DEPENDENT
     Dosage: 42 IU, QD, SUBCUTANEOUS
     Route: 058
     Dates: start: 20031216
  2. NOVONORM (REPAGLINIDE) TABLET, 1.0MG [Suspect]
     Dosage: 1 MG, QD, PER ORAL
     Route: 048
     Dates: start: 20031216
  3. METFORMIN HCL [Concomitant]
  4. DIGOXIN [Concomitant]
  5. ZARATOR ^PFIZER^ (ATORVASTATIN) [Concomitant]
  6. ASASANTIN (ACETYLSALICYLIC ACID, DIPYRIDAMOLE) [Concomitant]
  7. APROVEL (IRBESARTAN) [Concomitant]

REACTIONS (2)
  - HYPOGLYCAEMIC COMA [None]
  - MARKEDLY REDUCED DIETARY INTAKE [None]
